FAERS Safety Report 9913129 (Version 1)
Quarter: 2014Q1

REPORT INFORMATION
  Report Type: Spontaneous
  Country: FR (occurrence: None)
  Receive Date: 20140214
  Receipt Date: 20140214
  Transmission Date: 20141002
  Serious: Yes (Hospitalization)
  Sender: FDA-Public Use
  Company Number: 2014P1001281

PATIENT
  Age: 43 Year
  Sex: Male

DRUGS (2)
  1. PLAQUENIL [Suspect]
     Indication: LICHEN MYXOEDEMATOSUS
     Route: 048
     Dates: start: 2010
  2. OCTAGAM [Suspect]
     Indication: LICHEN MYXOEDEMATOSUS
     Route: 042
     Dates: start: 20140109, end: 20140109

REACTIONS (5)
  - Headache [None]
  - Nausea [None]
  - Paraesthesia [None]
  - Diplopia [None]
  - Aphasia [None]
